FAERS Safety Report 7300702-3 (Version None)
Quarter: 2011Q1

REPORT INFORMATION
  Report Type: 
  Country: None (occurrence: None)
  Receive Date: 20110103
  Receipt Date: 20100212
  Transmission Date: 20110831
  Serious: Yes (Other)
  Sender: FDA-Public Use
  Company Number: US-004038

PATIENT
  Sex: Female

DRUGS (3)
  1. PROHANCE [Suspect]
     Indication: NUCLEAR MAGNETIC RESONANCE IMAGING
     Dosage: ONCE INTRAVENOUS
     Route: 042
     Dates: start: 20100104, end: 20100104
  2. PHENTERMINE [Concomitant]
  3. LORAZEPAM [Concomitant]

REACTIONS (6)
  - RASH [None]
  - PRURITUS [None]
  - PHARYNGEAL OEDEMA [None]
  - CHEST DISCOMFORT [None]
  - DYSPHAGIA [None]
  - DYSPNOEA [None]
